FAERS Safety Report 20135492 (Version 1)
Quarter: 2021Q4

REPORT INFORMATION
  Report Type: Other
  Country: US (occurrence: None)
  Receive Date: 20211201
  Receipt Date: 20211201
  Transmission Date: 20220303
  Serious: Yes (Other)
  Sender: FDA-Public Use
  Company Number: US-ROCHE-2801458

PATIENT
  Sex: Female
  Weight: 68 kg

DRUGS (6)
  1. PEGASYS [Suspect]
     Active Substance: PEGINTERFERON ALFA-2A
     Indication: Essential thrombocythaemia
     Dosage: DATE OF TREATMENT: 19/APR/2021, 30/APR/2021,27/AUG/2021,3/SEP/2021,10/SEP/2021.17/SEP/2021,
     Route: 058
     Dates: start: 20210305
  2. PEGASYS [Suspect]
     Active Substance: PEGINTERFERON ALFA-2A
     Indication: Vitamin B complex deficiency
     Dosage: 24/SEP/2021, 1/OCT/2021, 8/OCT/2021, 10/OCT/2021
     Route: 058
  3. PEGASYS [Suspect]
     Active Substance: PEGINTERFERON ALFA-2A
     Indication: Myeloproliferative neoplasm
     Dosage: INJECT 90MCG (0.5ML) SUBCUTANEOUSLY EVERY WEEK
     Route: 058
  4. PEGASYS [Suspect]
     Active Substance: PEGINTERFERON ALFA-2A
     Indication: Biotin deficiency
  5. ANAGRELIDE [Concomitant]
     Active Substance: ANAGRELIDE
  6. ASPIRIN [Concomitant]
     Active Substance: ASPIRIN

REACTIONS (2)
  - Ankle fracture [Unknown]
  - Off label use [Unknown]
